FAERS Safety Report 5018143-0 (Version None)
Quarter: 2006Q2

REPORT INFORMATION
  Report Type: 
  Country: None (occurrence: None)
  Receive Date: 20060530
  Receipt Date: 20050311
  Transmission Date: 20061013
  Serious: Yes (Hospitalization)
  Sender: FDA-Public Use
  Company Number: 2005032460

PATIENT
  Age: 84 Year
  Sex: Male

DRUGS (5)
  1. LYRICA [Suspect]
     Indication: NEURALGIA
     Dosage: 300 MG (150 MG, 2 IN 1 D), ORAL
     Route: 048
     Dates: start: 20041201, end: 20050109
  2. CELECOXIB (CELECOXIB) [Concomitant]
  3. CITALOPRAM HYDROBROMIDE [Concomitant]
  4. RABEPRAZOLE (RABEPRAZOLE) [Concomitant]
  5. ALL OTHER THERAPEUTIC PRODUCTS [Concomitant]

REACTIONS (3)
  - AMNESIA [None]
  - COGNITIVE DISORDER [None]
  - GENERAL PHYSICAL HEALTH DETERIORATION [None]
